FAERS Safety Report 13463261 (Version 1)
Quarter: 2017Q2

REPORT INFORMATION
  Report Type: Spontaneous
  Country: RU (occurrence: RU)
  Receive Date: 20170420
  Receipt Date: 20170420
  Transmission Date: 20170830
  Serious: Yes (Other)
  Sender: FDA-Public Use
  Company Number: RU-ELI_LILLY_AND_COMPANY-RU201704005280

PATIENT
  Age: 77 Year
  Sex: Female

DRUGS (4)
  1. ERBITUX [Suspect]
     Active Substance: CETUXIMAB
     Dosage: 850 MG, OTHER
     Route: 042
     Dates: start: 201610
  2. ERBITUX [Suspect]
     Active Substance: CETUXIMAB
     Indication: ADENOCARCINOMA OF COLON
     Dosage: 850 MG, OTHER
     Route: 042
     Dates: start: 20160129
  3. ERBITUX [Suspect]
     Active Substance: CETUXIMAB
     Dosage: 850 MG, OTHER
     Route: 042
     Dates: start: 20160426, end: 20160531
  4. HEPTRAL                            /00882301/ [Concomitant]
     Indication: PROPHYLAXIS
     Dosage: UNK

REACTIONS (7)
  - Malignant neoplasm progression [Unknown]
  - Nail disorder [Unknown]
  - Conjunctivitis [Unknown]
  - Dry skin [Unknown]
  - Dermatitis exfoliative [Unknown]
  - Lymphadenopathy [Unknown]
  - Off label use [Unknown]

NARRATIVE: CASE EVENT DATE: 20170206
